FAERS Safety Report 16778246 (Version 1)
Quarter: 2019Q3

REPORT INFORMATION
  Report Type: Spontaneous
  Country: GB (occurrence: GB)
  Receive Date: 20190905
  Receipt Date: 20190905
  Transmission Date: 20191005
  Serious: Yes (Hospitalization)
  Sender: FDA-Public Use
  Company Number: GB-AUROBINDO-AUR-APL-2019-057745

PATIENT

DRUGS (3)
  1. PHENOBARBITAL. [Interacting]
     Active Substance: PHENOBARBITAL
     Indication: EPILEPSY
     Dosage: 90 MILLIGRAM, DAILY
     Route: 065
  2. CAPECITABINE. [Interacting]
     Active Substance: CAPECITABINE
     Indication: GASTROINTESTINAL CARCINOMA
     Dosage: 2 GRAM, DAILY
     Route: 048
  3. PHENYTOIN. [Suspect]
     Active Substance: PHENYTOIN
     Indication: EPILEPSY
     Dosage: 350 MILLIGRAM, DAILY
     Route: 048

REACTIONS (6)
  - Speech disorder [Unknown]
  - Gait disturbance [Unknown]
  - Nystagmus [Unknown]
  - Memory impairment [Unknown]
  - Labelled drug-drug interaction medication error [Unknown]
  - Toxicity to various agents [Not Recovered/Not Resolved]
